FAERS Safety Report 6573329-9 (Version None)
Quarter: 2010Q1

REPORT INFORMATION
  Report Type: 
  Country: None (occurrence: None)
  Receive Date: 20100203
  Receipt Date: 20100203
  Transmission Date: 20100710
  Serious: Yes (Life-Threatening)
  Sender: FDA-Public Use
  Company Number: None

PATIENT
  Age: 76 Year
  Sex: Female
  Weight: 63.6 kg

DRUGS (1)
  1. AMLODIPINE BESYLATE [Suspect]

REACTIONS (4)
  - BLOOD PRESSURE INCREASED [None]
  - EMOTIONAL DISORDER [None]
  - HEART RATE INCREASED [None]
  - PRODUCT SUBSTITUTION ISSUE [None]
